FAERS Safety Report 11128277 (Version 2)
Quarter: 2015Q2

REPORT INFORMATION
  Report Type: Spontaneous
  Country: GB (occurrence: GB)
  Receive Date: 20150521
  Receipt Date: 20150528
  Transmission Date: 20150821
  Serious: Yes (Hospitalization, Other)
  Sender: FDA-Public Use
  Company Number: GB-PFIZER INC-2015170056

PATIENT
  Age: 77 Year
  Sex: Female
  Weight: 38 kg

DRUGS (5)
  1. AVASTIN [Suspect]
     Active Substance: BEVACIZUMAB
     Indication: GASTRIC CANCER
     Dosage: 7.5 MG, UNK
     Route: 042
     Dates: start: 20130213
  2. CISPLATIN. [Suspect]
     Active Substance: CISPLATIN
     Indication: GASTRIC CANCER
     Dosage: 310 MG, UNK
     Route: 042
     Dates: start: 20130213
  3. EPIRUBICIN HCL [Suspect]
     Active Substance: EPIRUBICIN HYDROCHLORIDE
     Indication: GASTRIC CANCER
     Dosage: 70 MG, UNK
     Route: 042
     Dates: start: 20130213
  4. CARBOPLATIN. [Suspect]
     Active Substance: CARBOPLATIN
     Indication: GASTRIC CANCER
     Dosage: 310 MG, UNK
     Route: 042
     Dates: start: 20130213
  5. XELODA [Suspect]
     Active Substance: CAPECITABINE
     Indication: GASTRIC CANCER
     Dosage: 27300 MG, UNK
     Route: 048
     Dates: start: 20130213

REACTIONS (3)
  - Leukopenia [Unknown]
  - Weight decreased [Not Recovered/Not Resolved]
  - Neutropenia [Unknown]

NARRATIVE: CASE EVENT DATE: 20130408
